FAERS Safety Report 25517813 (Version 3)
Quarter: 2025Q3

REPORT INFORMATION
  Report Type: Report from Study
  Country: US (occurrence: US)
  Receive Date: 20250704
  Receipt Date: 20250810
  Transmission Date: 20251021
  Serious: Yes (Hospitalization, Other)
  Sender: ALEXION PHARMACEUTICALS
  Company Number: US-AstraZeneca-CH-00899135A

PATIENT
  Age: 75 Year
  Sex: Male
  Weight: 88.22 kg

DRUGS (19)
  1. TEZEPELUMAB [Suspect]
     Active Substance: TEZEPELUMAB
     Indication: Asthma
  2. TEZEPELUMAB [Suspect]
     Active Substance: TEZEPELUMAB
  3. ACETYLCYSTEINE [Concomitant]
     Active Substance: ACETYLCYSTEINE
     Route: 065
  4. ALBUTEROL SULFATE [Concomitant]
     Active Substance: ALBUTEROL SULFATE
     Route: 065
  5. AMLODIPINE [Concomitant]
     Active Substance: AMLODIPINE BESYLATE
  6. ATORVASTATIN [Concomitant]
     Active Substance: ATORVASTATIN
  7. CETIRIZINE [Concomitant]
     Active Substance: CETIRIZINE HYDROCHLORIDE
  8. CIALIS [Concomitant]
     Active Substance: TADALAFIL
  9. DULOXETINE [Concomitant]
     Active Substance: DULOXETINE
  10. FLUTICASONE [Concomitant]
     Active Substance: FLUTICASONE
     Route: 065
  11. LINZESS [Concomitant]
     Active Substance: LINACLOTIDE
  12. LOSARTAN POTASSIUM [Concomitant]
     Active Substance: LOSARTAN POTASSIUM
  13. LYRICA [Concomitant]
     Active Substance: PREGABALIN
  14. MONTELUKAST SODIUM [Concomitant]
     Active Substance: MONTELUKAST SODIUM
  15. MUCINEX [Concomitant]
     Active Substance: GUAIFENESIN
  16. VITAMINS [Concomitant]
     Active Substance: VITAMINS
  17. PROTONIX [Concomitant]
     Active Substance: PANTOPRAZOLE SODIUM
     Route: 065
  18. TRELEGY ELLIPTA [Concomitant]
     Active Substance: FLUTICASONE FUROATE\UMECLIDINIUM BROMIDE\VILANTEROL TRIFENATATE
     Route: 065
  19. VEMLIDY [Concomitant]
     Active Substance: TENOFOVIR ALAFENAMIDE FUMARATE

REACTIONS (18)
  - Pulmonary fibrosis [Unknown]
  - Pneumonia [Unknown]
  - Bronchiectasis [Unknown]
  - Asthma [Unknown]
  - Pulmonary hypertension [Unknown]
  - Hypoxia [Unknown]
  - Chronic respiratory failure [Unknown]
  - Reversible airways obstruction [Unknown]
  - Cough [Unknown]
  - Wheezing [Unknown]
  - Chest discomfort [Unknown]
  - Upper-airway cough syndrome [Unknown]
  - Rhonchi [Unknown]
  - Obstructive sleep apnoea syndrome [Unknown]
  - Fatigue [Unknown]
  - Hypersomnia [Unknown]
  - Nocturia [Unknown]
  - Dyspnoea [Unknown]
